FAERS Safety Report 15640869 (Version 1)
Quarter: 2018Q4

REPORT INFORMATION
  Report Type: Other
  Country: CA (occurrence: CA)
  Receive Date: 20181120
  Receipt Date: 20181120
  Transmission Date: 20190205
  Serious: Yes (Other)
  Sender: FDA-Public Use
  Company Number: CA-PURDUE PHARMA-CAN-2017-0008194

PATIENT
  Age: 76 Year
  Sex: Female

DRUGS (9)
  1. MORPHINE SULFATE. [Suspect]
     Active Substance: MORPHINE SULFATE
     Indication: PRODUCT USED FOR UNKNOWN INDICATION
     Dosage: UNK
     Route: 052
  2. FENTANYL. [Suspect]
     Active Substance: FENTANYL
     Indication: SPINAL ANAESTHESIA
     Dosage: UNK
     Route: 037
  3. BUPIVACAINE. [Suspect]
     Active Substance: BUPIVACAINE
     Dosage: UNK
     Route: 065
  4. KETOROLAC [Concomitant]
     Active Substance: KETOROLAC\KETOROLAC TROMETHAMINE
     Route: 052
  5. ROPIVACAINE HYDROCHLORIDE. [Concomitant]
     Active Substance: ROPIVACAINE HYDROCHLORIDE
     Route: 052
  6. EPINEPHRINE. [Concomitant]
     Active Substance: EPINEPHRINE
     Route: 052
  7. FENTANYL. [Suspect]
     Active Substance: FENTANYL
     Indication: PAIN
     Dosage: UNK
     Route: 042
  8. BUPIVACAINE. [Suspect]
     Active Substance: BUPIVACAINE
     Indication: SPINAL ANAESTHESIA
     Dosage: UNK
     Route: 037
  9. SODIUM CHLORIDE. [Concomitant]
     Active Substance: SODIUM CHLORIDE
     Route: 052

REACTIONS (6)
  - Hypertension [Recovered/Resolved]
  - Abdominal pain upper [Recovered/Resolved]
  - Sphincter of Oddi dysfunction [Recovered/Resolved]
  - Discomfort [Recovered/Resolved]
  - Bradycardia [Recovered/Resolved]
  - Sinus bradycardia [Recovered/Resolved]
